FAERS Safety Report 23752439 (Version 3)
Quarter: 2024Q3

REPORT INFORMATION
  Report Type: Spontaneous
  Country: US (occurrence: US)
  Receive Date: 20240417
  Receipt Date: 20240820
  Transmission Date: 20241016
  Serious: Yes (Other)
  Sender: VERTEX
  Company Number: US-VERTEX PHARMACEUTICALS-2024-006470

PATIENT
  Age: 43 Year

DRUGS (2)
  1. TRIKAFTA [Suspect]
     Active Substance: ELEXACAFTOR\IVACAFTOR\TEZACAFTOR
     Indication: Cystic fibrosis
     Dosage: UNK
     Route: 048
  2. TRIKAFTA [Suspect]
     Active Substance: ELEXACAFTOR\IVACAFTOR\TEZACAFTOR
     Dosage: SWITCHED DOSE
     Route: 048

REACTIONS (7)
  - Brain fog [Recovering/Resolving]
  - Myasthenia gravis [Unknown]
  - Viral infection [Unknown]
  - Learning disorder [Unknown]
  - Nasopharyngitis [Unknown]
  - Attention deficit hyperactivity disorder [Not Recovered/Not Resolved]
  - Depression [Not Recovered/Not Resolved]
